FAERS Safety Report 7405271-5 (Version None)
Quarter: 2011Q2

REPORT INFORMATION
  Report Type: 
  Country: None (occurrence: None)
  Receive Date: 20110411
  Receipt Date: 20110329
  Transmission Date: 20111010
  Serious: Yes (Hospitalization, Other)
  Sender: FDA-Public Use
  Company Number: GB-AMGEN-GBRSP2011014425

PATIENT
  Age: 51 Year
  Sex: Male
  Weight: 80.9 kg

DRUGS (6)
  1. LANTHANUM CARBONATE [Concomitant]
     Dosage: 750 MG, UNK
     Route: 048
     Dates: start: 20101208
  2. ARANESP [Suspect]
     Indication: ANAEMIA
     Dosage: 30 A?G, QWK
     Route: 058
     Dates: start: 20110101, end: 20110304
  3. AMLODIPINE [Concomitant]
     Dosage: 10 MG, UNK
     Route: 048
     Dates: start: 20101208
  4. GLICLAZIDE [Concomitant]
     Dosage: 80 MG, UNK
     Route: 048
     Dates: start: 20080329
  5. VALSARTAN [Concomitant]
     Dosage: 160 MG, UNK
     Route: 048
     Dates: start: 20100723
  6. ARANESP [Suspect]
     Indication: RENAL FAILURE CHRONIC
     Dosage: 20 A?G, QWK
     Route: 058
     Dates: start: 20100825, end: 20100912

REACTIONS (5)
  - MOBILITY DECREASED [None]
  - INJECTION SITE SWELLING [None]
  - OEDEMA PERIPHERAL [None]
  - INJECTION SITE PAIN [None]
  - INCORRECT ROUTE OF DRUG ADMINISTRATION [None]
